FAERS Safety Report 7049788-4 (Version None)
Quarter: 2010Q4

REPORT INFORMATION
  Report Type: 
  Country: None (occurrence: None)
  Receive Date: 20101018
  Receipt Date: 20100928
  Transmission Date: 20110411
  Serious: Yes (Hospitalization)
  Sender: FDA-Public Use
  Company Number: US-BAYER-201035629NA

PATIENT
  Age: 20 Year
  Sex: Female
  Weight: 156 kg

DRUGS (9)
  1. YAZ [Suspect]
     Indication: CONTRACEPTION
     Dosage: FILLED ON 08-APR-2008
     Route: 065
     Dates: start: 20080201, end: 20081101
  2. YASMIN [Suspect]
     Indication: CONTRACEPTION
     Route: 048
     Dates: start: 20080201, end: 20081101
  3. NEXIUM [Concomitant]
     Route: 065
  4. PROTONIX [Concomitant]
     Indication: CHOLECYSTECTOMY
     Dosage: STOPPED ON 22-JAN FROM UNSPECIFIED YEAR.
     Route: 065
     Dates: start: 20081025
  5. TORADOL [Concomitant]
     Indication: CHOLECYSTECTOMY
     Dosage: STOPPED ON 22-JAN FROM AN UNSPECIFIED YEAR.
     Route: 065
     Dates: start: 20081024
  6. DEMEROL [Concomitant]
     Indication: CHOLECYSTECTOMY
     Route: 065
     Dates: start: 20081024
  7. LORTAB [Concomitant]
     Indication: CHOLECYSTECTOMY
     Route: 065
  8. LEVOFLOXACIN [Concomitant]
     Indication: CHOLECYSTECTOMY
     Route: 042
     Dates: start: 20081024, end: 20081024
  9. ZOFRAN [Concomitant]
     Indication: CHOLECYSTECTOMY
     Route: 065
     Dates: start: 20081024, end: 20081024

REACTIONS (3)
  - ABDOMINAL PAIN UPPER [None]
  - CHOLELITHIASIS [None]
  - VOMITING [None]
